FAERS Safety Report 11308504 (Version 3)
Quarter: 2015Q4

REPORT INFORMATION
  Report Type: Report from Study
  Country: US (occurrence: US)
  Receive Date: 20150724
  Receipt Date: 20151110
  Transmission Date: 20160304
  Serious: Yes (Hospitalization)
  Sender: FDA-Public Use
  Company Number: US-BIOGENIDEC-2015BI102917

PATIENT
  Age: 67 Year
  Sex: Male

DRUGS (1)
  1. TYSABRI [Suspect]
     Active Substance: NATALIZUMAB
     Indication: MULTIPLE SCLEROSIS
     Route: 042
     Dates: start: 20150702, end: 20150702

REACTIONS (5)
  - Multiple sclerosis relapse [Recovered/Resolved]
  - Streptococcal bacteraemia [Recovered/Resolved]
  - Urinary tract infection [Recovered/Resolved]
  - Depressed mood [Not Recovered/Not Resolved]
  - Gastric disorder [Not Recovered/Not Resolved]

NARRATIVE: CASE EVENT DATE: 20150714
